FAERS Safety Report 9776851 (Version 2)
Quarter: 2014Q1

REPORT INFORMATION
  Report Type: Spontaneous
  Country: GB (occurrence: GB)
  Receive Date: 20131221
  Receipt Date: 20140219
  Transmission Date: 20141002
  Serious: Yes (Death, Other)
  Sender: FDA-Public Use
  Company Number: PHFR2013GB007243

PATIENT
  Age: 62 Year
  Sex: Male
  Weight: 76 kg

DRUGS (9)
  1. CLOZARIL [Suspect]
     Indication: SCHIZOPHRENIA
     Dosage: 525 MG, UNK
     Route: 048
     Dates: start: 20010323
  2. ESCITALOPRAM [Concomitant]
     Indication: ANXIETY
     Dosage: 10 MG, UNK
     Route: 048
  3. LORAZEPAM [Concomitant]
     Indication: ANXIETY
     Dosage: 1 MG, UNK
     Route: 048
  4. SERETIDE [Concomitant]
     Indication: CHRONIC OBSTRUCTIVE PULMONARY DISEASE
     Dosage: UNK (4 PUFFS)
     Route: 055
  5. IPRATROPIUM [Concomitant]
     Indication: CHRONIC OBSTRUCTIVE PULMONARY DISEASE
     Dosage: UNK (1 PUFF)
     Route: 055
  6. LANSOPRAZOLE [Concomitant]
     Indication: DYSPEPSIA
     Dosage: 30 MG, UNK
  7. DOCUSATE SODIUM [Concomitant]
     Indication: CONSTIPATION
     Dosage: 400 MG,
     Route: 048
  8. GAVISCON                                /GFR/ [Concomitant]
     Indication: DYSPEPSIA
     Dosage: 20 ML, UNK
     Route: 048
  9. PARACETAMOL [Concomitant]
     Indication: PAIN
     Dosage: 4 G, UNK
     Route: 048

REACTIONS (9)
  - Bronchopneumonia [Fatal]
  - Intestinal obstruction [Fatal]
  - Gastrointestinal haemorrhage [Unknown]
  - Dyspnoea [Unknown]
  - Abdominal distension [Unknown]
  - Unresponsive to stimuli [Unknown]
  - White blood cell count increased [Unknown]
  - Diarrhoea [Unknown]
  - Vomiting [Unknown]
